FAERS Safety Report 13077514 (Version 1)
Quarter: 2016Q4

REPORT INFORMATION
  Report Type: Spontaneous
  Country: IT (occurrence: IT)
  Receive Date: 20161231
  Receipt Date: 20161231
  Transmission Date: 20170207
  Serious: Yes (Other)
  Sender: FDA-Public Use
  Company Number: IT-ACCORD-046967

PATIENT
  Age: 38 Year
  Sex: Male

DRUGS (3)
  1. DELORAZEPAM [Suspect]
     Active Substance: DELORAZEPAM
     Route: 048
     Dates: start: 20150908, end: 20150908
  2. FLUNOX [Suspect]
     Active Substance: FLURAZEPAM HYDROCHLORIDE
     Route: 048
     Dates: start: 20150908, end: 20150908
  3. QUETIAPINE. [Suspect]
     Active Substance: QUETIAPINE
     Route: 048
     Dates: start: 20150908, end: 20150908

REACTIONS (3)
  - Intentional self-injury [Unknown]
  - Drug abuse [Recovered/Resolved]
  - Sopor [Recovered/Resolved]

NARRATIVE: CASE EVENT DATE: 20150908
